FAERS Safety Report 26115166 (Version 1)
Quarter: 2025Q4

REPORT INFORMATION
  Report Type: Report from Study
  Country: CA (occurrence: CA)
  Receive Date: 20251203
  Receipt Date: 20251203
  Transmission Date: 20260117
  Serious: Yes (Hospitalization, Other)
  Sender: CELLTRION
  Company Number: CA-CELLTRION INC.-2024CA028356

PATIENT

DRUGS (2)
  1. USTEKINUMAB [Suspect]
     Active Substance: USTEKINUMAB
     Indication: Crohn^s disease
     Dosage: 90 MG EVERY 4 WEEKS (THERAPY DURATION:: FOR AS LONG AS THE TREATMENT IS EFFECTIVE AND WELL TOLERATED
     Route: 058
     Dates: start: 202411
  2. USTEKINUMAB [Suspect]
     Active Substance: USTEKINUMAB
     Dosage: LAST STEQEYMA ADMINISTRATION: 07OCT2025, 90MG S/C, EVERY 4 WEEKS
     Route: 058
     Dates: start: 20251007

REACTIONS (3)
  - Cardiac failure congestive [Recovering/Resolving]
  - Pneumonia [Recovering/Resolving]
  - Off label use [Unknown]

NARRATIVE: CASE EVENT DATE: 20241110
